FAERS Safety Report 9883692 (Version 4)
Quarter: 2014Q2

REPORT INFORMATION
  Report Type: Spontaneous
  Country: GB (occurrence: GB)
  Receive Date: 20140210
  Receipt Date: 20140407
  Transmission Date: 20141212
  Serious: Yes (Other)
  Sender: FDA-Public Use
  Company Number: GB-AMGEN-GBRSP2014008897

PATIENT
  Age: 47 Year
  Sex: Female

DRUGS (4)
  1. ENBREL [Suspect]
     Indication: RHEUMATOID ARTHRITIS
     Dosage: 50 MG WEEKLY
     Route: 058
     Dates: start: 2011
  2. FERROUS FUMARATE [Concomitant]
     Dosage: UNK, LONG TERM
  3. SENNA                              /00142201/ [Concomitant]
     Dosage: UNK, LONG TERM
  4. OMEPRAZOLE [Concomitant]
     Dosage: UNK, LONG TERM

REACTIONS (1)
  - Venous thrombosis limb [Recovering/Resolving]
